FAERS Safety Report 6738554-2 (Version None)
Quarter: 2010Q2

REPORT INFORMATION
  Report Type: 
  Country: None (occurrence: None)
  Receive Date: 20100524
  Receipt Date: 20100517
  Transmission Date: 20101027
  Serious: Yes (Other)
  Sender: FDA-Public Use
  Company Number: NL-TEVA-235140ISR

PATIENT
  Age: 61 Year
  Sex: Male

DRUGS (9)
  1. TAMSULOSIN HCL [Suspect]
     Indication: BENIGN PROSTATIC HYPERPLASIA
  2. INSULIN [Suspect]
  3. METFORMIN [Concomitant]
     Route: 048
  4. GLIMEPIRIDE [Concomitant]
  5. METOPROLOL [Concomitant]
  6. QUINAPRIL [Concomitant]
  7. ATORVASTATIN [Concomitant]
  8. ACETYLSALICYLIC ACID [Concomitant]
  9. SILDENAFIL [Concomitant]

REACTIONS (1)
  - HYPERGLYCAEMIA [None]
